FAERS Safety Report 9346689 (Version 2)
Quarter: 2013Q2

REPORT INFORMATION
  Report Type: Report from Study
  Country: US (occurrence: US)
  Receive Date: 20130613
  Receipt Date: 20130619
  Transmission Date: 20140414
  Serious: Yes (Other)
  Sender: FDA-Public Use
  Company Number: US-SANOFI-AVENTIS-2013SA059003

PATIENT
  Sex: 0

DRUGS (4)
  1. OXALIPLATIN [Suspect]
     Indication: NEOPLASM
     Dosage: ADMINISTERED IN 250-500ML WATER WITH 5% DEXTROSE OVER 2 HOURS ON DAY 1 OF 21 DAY COURSE.
     Route: 042
  2. DOXORUBICIN [Suspect]
     Indication: NEOPLASM
     Dosage: RAPID DRIP INTRAVENOUS INFUSION OVER 15 MINUTES ON DAYS 1-3 OF EACH 21 DAY COURSE.
     Route: 041
  3. DEXRAZOXANE [Concomitant]
     Dosage: 10 TIMES THE DOSE OF DOXORUBICIN INFUSION ON DAYS 1, 2 AND 3
  4. GRANULOCYTE COLONY STIMULATING FACTOR [Concomitant]
     Route: 058

REACTIONS (1)
  - Cardiotoxicity [Unknown]
